FAERS Safety Report 5759907-5 (Version None)
Quarter: 2008Q2

REPORT INFORMATION
  Report Type: 
  Country: None (occurrence: None)
  Receive Date: 20080605
  Receipt Date: 20080603
  Transmission Date: 20081010
  Serious: Yes (Hospitalization)
  Sender: FDA-Public Use
  Company Number: AU-BRISTOL-MYERS SQUIBB COMPANY-14213631

PATIENT
  Age: 50 Year
  Sex: Female

DRUGS (13)
  1. ABATACEPT [Suspect]
     Indication: SYSTEMIC LUPUS ERYTHEMATOSUS
     Route: 042
     Dates: start: 20070710
  2. HYDROXYCHLOROQUINE SULFATE [Concomitant]
     Dates: start: 20010101
  3. ASPIRIN [Concomitant]
     Dates: start: 20060619
  4. TRAMADOL HCL [Concomitant]
     Dates: start: 20060115
  5. OXYCODONE HCL [Concomitant]
     Dates: start: 20060115
  6. TEMAZEPAM [Concomitant]
     Dates: start: 20050101
  7. RABEPRAZOLE SODIUM [Concomitant]
     Dates: start: 20050601
  8. SERTRALINE [Concomitant]
     Dates: start: 20071221
  9. ACETAMINOPHEN [Concomitant]
     Dates: start: 20060723
  10. PREDNISOLONE [Concomitant]
     Dates: start: 20060927
  11. MELOXICAM [Concomitant]
     Dates: start: 20071210
  12. CELESTONE TAB [Concomitant]
     Dates: start: 20050901
  13. COLOXYL + SENNA [Concomitant]
     Dates: start: 20060115

REACTIONS (1)
  - PLEURISY [None]
